FAERS Safety Report 14180558 (Version 1)
Quarter: 2017Q4

REPORT INFORMATION
  Report Type: Report from Study
  Country: US (occurrence: US)
  Receive Date: 20171110
  Receipt Date: 20171110
  Transmission Date: 20180321
  Serious: Yes (Other)
  Sender: FDA-Public Use
  Company Number: US-THERATECHNOLOGIES, INC.-TH-2017-00336

PATIENT

DRUGS (14)
  1. LISINOPRIL. [Concomitant]
     Active Substance: LISINOPRIL
     Indication: HYPERTENSION
     Dosage: 1 TAB, QD
     Route: 048
     Dates: start: 20150818
  2. TIVICAY [Concomitant]
     Active Substance: DOLUTEGRAVIR SODIUM
     Indication: HIV INFECTION
     Dosage: 50 MG MILLIGRAM(S), QD
     Route: 048
     Dates: start: 20151102
  3. MULTIVITAMIN                       /07504101/ [Concomitant]
     Active Substance: VITAMINS
     Indication: NUTRITIONAL SUPPLEMENTATION
     Dosage: 1 TAB, QD
     Route: 048
     Dates: start: 2010
  4. TRESIBA [Concomitant]
     Active Substance: INSULIN DEGLUDEC
     Indication: DIABETES MELLITUS
     Dosage: 120 UNITS, QD
     Route: 058
     Dates: start: 20170808
  5. EGRIFTA [Suspect]
     Active Substance: TESAMORELIN
     Indication: LIPODYSTROPHY ACQUIRED
     Dosage: 1 INJECTION, QD
     Route: 058
     Dates: start: 20151023
  6. PREZCOBIX [Concomitant]
     Active Substance: COBICISTAT\DARUNAVIR ETHANOLATE
     Indication: HIV INFECTION
     Dosage: 1 TAB, QD
     Route: 048
     Dates: start: 20150316
  7. INTELENCE [Concomitant]
     Active Substance: ETRAVIRINE
     Indication: HIV INFECTION
     Dosage: 200 MG MILLIGRAM(S), QD
     Route: 048
     Dates: start: 20151106
  8. LANTUS [Concomitant]
     Active Substance: INSULIN GLARGINE
     Indication: DIABETES MELLITUS
     Dosage: 100 UNITS, BID
     Route: 058
     Dates: start: 20151026, end: 20170807
  9. CLONAZEPAM. [Concomitant]
     Active Substance: CLONAZEPAM
     Indication: ANXIETY
     Dosage: 0.5 MG MILLIGRAM(S), BID
     Route: 048
     Dates: start: 20150819
  10. PROBIOTICS                         /90114801/ [Concomitant]
     Indication: NUTRITIONAL SUPPLEMENTATION
     Dosage: 1 TAB, QD
     Route: 048
     Dates: start: 2010
  11. TESTOSTERONE. [Concomitant]
     Active Substance: TESTOSTERONE
     Indication: HYPOGONADISM
     Dosage: 200 MG MILLIGRAM(S), QW
     Route: 030
     Dates: start: 20050706
  12. LIPITOR [Concomitant]
     Active Substance: ATORVASTATIN CALCIUM
     Indication: HYPERLIPIDAEMIA
     Dosage: 40 MG MILLIGRAM(S), QD
     Route: 048
     Dates: start: 20130225
  13. EGRIFTA [Suspect]
     Active Substance: TESAMORELIN
     Indication: LIPODYSTROPHY ACQUIRED
     Dosage: 1 INJECTION, QD
     Route: 058
     Dates: start: 20151023
  14. MIRTAZAPINE. [Concomitant]
     Active Substance: MIRTAZAPINE
     Indication: DEPRESSION
     Dosage: 45 MG MILLIGRAM(S), QD
     Route: 048
     Dates: start: 20151026

REACTIONS (1)
  - Shigella infection [Recovered/Resolved with Sequelae]

NARRATIVE: CASE EVENT DATE: 20171016
